FAERS Safety Report 14556737 (Version 1)
Quarter: 2018Q1

REPORT INFORMATION
  Report Type: Spontaneous
  Country: US (occurrence: US)
  Receive Date: 20180219
  Receipt Date: 20180219
  Transmission Date: 20180509
  Serious: Yes (Other)
  Sender: FDA-Public Use
  Company Number: None

PATIENT
  Age: 21 Year
  Sex: Female
  Weight: 66.68 kg

DRUGS (1)
  1. GENERIC TRILEPTAL 300MG [Suspect]
     Active Substance: OXCARBAZEPINE
     Indication: GENERALISED TONIC-CLONIC SEIZURE
     Dosage: FREQUENCY - 2 Q AM/3 QHS
     Route: 048
     Dates: start: 20150213, end: 20150714

REACTIONS (2)
  - Drug ineffective [None]
  - Seizure [None]

NARRATIVE: CASE EVENT DATE: 20150213
